FAERS Safety Report 7365471-X (Version None)
Quarter: 2011Q1

REPORT INFORMATION
  Report Type: 
  Country: None (occurrence: None)
  Receive Date: 20110316
  Receipt Date: 20110316
  Transmission Date: 20110831
  Serious: Yes (Other)
  Sender: FDA-Public Use
  Company Number: None

PATIENT
  Sex: Female
  Weight: 65.318 kg

DRUGS (1)
  1. VIMOVO [Suspect]
     Indication: ARTHRITIS
     Dosage: 500M-20MG 1X 12 HR ORAL NAPROSEN-NEXIUM COMBINATION
     Route: 048
     Dates: start: 20110210, end: 20110219

REACTIONS (2)
  - NIGHTMARE [None]
  - ABNORMAL DREAMS [None]
